FAERS Safety Report 4514787-0 (Version None)
Quarter: 2004Q4

REPORT INFORMATION
  Report Type: 
  Country: None (occurrence: None)
  Receive Date: 20041129
  Receipt Date: 20041129
  Transmission Date: 20050328
  Serious: Yes (Hospitalization)
  Sender: FDA-Public Use
  Company Number: None

PATIENT
  Age: 59 Year
  Sex: Male
  Weight: 77.7 kg

DRUGS (10)
  1. CELLCEPT [Suspect]
     Indication: VASCULITIS
     Dosage: 100 MG PO ONCE DAILY
     Route: 048
     Dates: start: 20041101, end: 20041103
  2. ADVAIR DISKUS 100/50 [Concomitant]
  3. ALBUTEROL [Concomitant]
  4. NASONEX [Concomitant]
  5. LIPITOR [Concomitant]
  6. FOLIC ACID [Concomitant]
  7. METHOTREXATE [Concomitant]
  8. PREDNISONE [Concomitant]
  9. GLYBURIDE [Concomitant]
  10. METFORMIN HCL [Concomitant]

REACTIONS (5)
  - ACUTE RESPIRATORY DISTRESS SYNDROME [None]
  - DYSPNOEA [None]
  - PNEUMONIA [None]
  - PYREXIA [None]
  - SEBORRHOEIC DERMATITIS [None]
